FAERS Safety Report 4321193-0 (Version None)
Quarter: 2004Q1

REPORT INFORMATION
  Report Type: 
  Country: None (occurrence: None)
  Receive Date: 20040323
  Receipt Date: 20040122
  Transmission Date: 20041129
  Serious: Yes (Death)
  Sender: FDA-Public Use
  Company Number: 200410277EU

PATIENT
  Age: 68 Year
  Sex: Male

DRUGS (6)
  1. DOCETAXEL [Suspect]
     Indication: NON-SMALL CELL LUNG CANCER
     Route: 042
     Dates: start: 20031212, end: 20031212
  2. PARAPLATIN [Suspect]
     Indication: NON-SMALL CELL LUNG CANCER
     Route: 042
     Dates: start: 20031212, end: 20031212
  3. UNKNOWN DRUG [Suspect]
     Indication: NON-SMALL CELL LUNG CANCER
     Route: 048
  4. ASPIRIN [Concomitant]
  5. SELOKEEN [Concomitant]
  6. LISINOPRIL [Concomitant]

REACTIONS (1)
  - PULMONARY HAEMORRHAGE [None]
